FAERS Safety Report 20093653 (Version 1)
Quarter: 2021Q4

REPORT INFORMATION
  Report Type: Report from Study
  Country: BR (occurrence: BR)
  Receive Date: 20211121
  Receipt Date: 20211121
  Transmission Date: 20220303
  Serious: Yes (Other)
  Sender: FDA-Public Use
  Company Number: BR-NOVARTISPH-NVSC2021BR260066

PATIENT
  Age: 41 Year
  Sex: Male

DRUGS (5)
  1. TAMOXIFEN [Suspect]
     Active Substance: TAMOXIFEN
     Indication: Intraductal proliferative breast lesion
     Dosage: UNK
     Route: 065
  2. ANASTROZOLE [Suspect]
     Active Substance: ANASTROZOLE
     Indication: Intraductal proliferative breast lesion
     Dosage: UNK
     Route: 065
  3. RIBOCICLIB [Suspect]
     Active Substance: RIBOCICLIB
     Indication: Intraductal proliferative breast lesion
     Dosage: UNK
     Route: 065
  4. FULVESTRANT [Suspect]
     Active Substance: FULVESTRANT
     Indication: Intraductal proliferative breast lesion
     Dosage: UNK
     Route: 065
  5. CYCLOPHOSPHAMIDE [Concomitant]
     Active Substance: CYCLOPHOSPHAMIDE
     Indication: Product used for unknown indication
     Dosage: UNK
     Route: 065

REACTIONS (12)
  - Lymphadenopathy [Unknown]
  - Neutropenia [Unknown]
  - Metastases to lymph nodes [Unknown]
  - Metastases to lung [Unknown]
  - Metastases to bone [Unknown]
  - Metastases to central nervous system [Unknown]
  - Neoplasm [Unknown]
  - Headache [Unknown]
  - Bone lesion [Unknown]
  - Anaemia [Unknown]
  - Central nervous system lesion [Unknown]
  - Therapy partial responder [Unknown]

NARRATIVE: CASE EVENT DATE: 20170401
